FAERS Safety Report 9181989 (Version 2)
Quarter: 2013Q2

REPORT INFORMATION
  Report Type: Spontaneous
  Country: US (occurrence: US)
  Receive Date: 20130322
  Receipt Date: 20130408
  Transmission Date: 20140414
  Serious: No
  Sender: FDA-Public Use
  Company Number: US-PFIZER INC-2013092596

PATIENT
  Age: 62 Year
  Sex: Female

DRUGS (8)
  1. VISTARIL [Suspect]
     Indication: DEPRESSION
     Dosage: 25 MG, 2X/DAY
     Route: 048
     Dates: start: 2001
  2. NEXIUM [Concomitant]
     Dosage: UNK
  3. DYAZIDE [Concomitant]
     Dosage: UNK
  4. LIPITOR [Concomitant]
     Dosage: UNK
  5. CYCLOSPORINE [Concomitant]
     Dosage: UNK
  6. PREDNISONE [Concomitant]
     Dosage: UNK
  7. CYCLOBENZAPRINE [Concomitant]
     Dosage: UNK
  8. PROCARDIA XL [Concomitant]
     Dosage: UNK

REACTIONS (1)
  - No adverse event [Unknown]
